FAERS Safety Report 25791932 (Version 2)
Quarter: 2025Q4

REPORT INFORMATION
  Report Type: Spontaneous
  Country: US (occurrence: US)
  Receive Date: 20250911
  Receipt Date: 20251014
  Transmission Date: 20260118
  Serious: No
  Sender: SANOFI AVENTIS
  Company Number: US-SA-2025SA269111

PATIENT
  Sex: Female
  Weight: 65.77 kg

DRUGS (43)
  1. DUPIXENT [Suspect]
     Active Substance: DUPILUMAB
     Indication: Chronic spontaneous urticaria
     Dosage: 600 MG, 1X
     Route: 058
  2. DUPIXENT [Suspect]
     Active Substance: DUPILUMAB
     Indication: Urticaria
     Dosage: 300 MG, QOW
     Route: 058
  3. ONDANSETRON [Concomitant]
     Active Substance: ONDANSETRON
  4. MAGNESIUM OXIDE [Concomitant]
     Active Substance: MAGNESIUM OXIDE
  5. VITAMIN B12 [Concomitant]
     Active Substance: CYANOCOBALAMIN
  6. NYSTATIN [Concomitant]
     Active Substance: NYSTATIN
  7. FLUOCINONIDE [Concomitant]
     Active Substance: FLUOCINONIDE
  8. MAGNESIUM CITRATE [Concomitant]
     Active Substance: MAGNESIUM CITRATE
  9. MUPIROCIN [Concomitant]
     Active Substance: MUPIROCIN
  10. KETOCONAZOLE [Concomitant]
     Active Substance: KETOCONAZOLE
  11. TRIAMCINOLONE ACETONIDE [Concomitant]
     Active Substance: TRIAMCINOLONE ACETONIDE
  12. BIOTIN [Concomitant]
     Active Substance: BIOTIN
  13. CEQUA [Concomitant]
     Active Substance: CYCLOSPORINE
  14. MIRALAX [Concomitant]
     Active Substance: POLYETHYLENE GLYCOL 3350
  15. CARBOXYMETHYLCELLULOSE SODIUM [Concomitant]
     Active Substance: CARBOXYMETHYLCELLULOSE SODIUM
  16. PATADAY ONCE DAILY RELIEF [Concomitant]
     Active Substance: OLOPATADINE HYDROCHLORIDE
  17. POTASSIUM CHLORIDE [Concomitant]
     Active Substance: POTASSIUM CHLORIDE
  18. VUITY [Concomitant]
     Active Substance: PILOCARPINE HYDROCHLORIDE
  19. FLONASE ALLERGY RELIEF [Concomitant]
     Active Substance: FLUTICASONE PROPIONATE
  20. AZELASTINE [Concomitant]
     Active Substance: AZELASTINE
  21. ROSUVASTATIN CALCIUM [Concomitant]
     Active Substance: ROSUVASTATIN CALCIUM
  22. SPIRONOLACTONE [Concomitant]
     Active Substance: SPIRONOLACTONE
  23. ALBUTEROL SULFATE [Concomitant]
     Active Substance: ALBUTEROL SULFATE
  24. DIAZEPAM [Concomitant]
     Active Substance: DIAZEPAM
  25. PROPRANOLOL [Concomitant]
     Active Substance: PROPRANOLOL HYDROCHLORIDE
  26. EPINEPHRINE [Concomitant]
     Active Substance: EPINEPHRINE
  27. OMEPRAZOLE [Concomitant]
     Active Substance: OMEPRAZOLE
  28. CALCIUM CARBONATE [Concomitant]
     Active Substance: CALCIUM CARBONATE
  29. BUSPIRONE HCL [Concomitant]
     Active Substance: BUSPIRONE HYDROCHLORIDE
  30. CITALOPRAM HYDROBROMIDE [Concomitant]
     Active Substance: CITALOPRAM HYDROBROMIDE
  31. TOPIRAMATE [Concomitant]
     Active Substance: TOPIRAMATE
  32. HYDROXYZINE [Concomitant]
     Active Substance: HYDROXYZINE HYDROCHLORIDE
  33. WEGOVY [Concomitant]
     Active Substance: SEMAGLUTIDE
  34. LETROZOLE [Concomitant]
     Active Substance: LETROZOLE
  35. OZEMPIC [Concomitant]
     Active Substance: SEMAGLUTIDE
  36. TOBRADEX [Concomitant]
     Active Substance: DEXAMETHASONE\TOBRAMYCIN
  37. ADDERALL [Concomitant]
     Active Substance: AMPHETAMINE ASPARTATE\AMPHETAMINE SULFATE\DEXTROAMPHETAMINE SACCHARATE\DEXTROAMPHETAMINE SULFATE
  38. DULOXETINE [Concomitant]
     Active Substance: DULOXETINE
  39. TEMAZEPAM [Concomitant]
     Active Substance: TEMAZEPAM
  40. ALPRAZOLAM [Concomitant]
     Active Substance: ALPRAZOLAM
  41. TORSEMIDE [Concomitant]
     Active Substance: TORSEMIDE
  42. GABAPENTIN [Concomitant]
     Active Substance: GABAPENTIN
  43. METFORMIN [Concomitant]
     Active Substance: METFORMIN HYDROCHLORIDE

REACTIONS (3)
  - Aneurysm [Unknown]
  - Corneal erosion [Unknown]
  - Product use in unapproved indication [Unknown]
